FAERS Safety Report 25901904 (Version 3)
Quarter: 2025Q4

REPORT INFORMATION
  Report Type: Spontaneous
  Country: US (occurrence: US)
  Receive Date: 20251009
  Receipt Date: 20251031
  Transmission Date: 20260117
  Serious: Yes (Hospitalization)
  Sender: Kenvue
  Company Number: US-KENVUE-20251003690

PATIENT
  Age: 56 Year
  Sex: Male

DRUGS (2)
  1. NEOSPORIN [Suspect]
     Active Substance: BACITRACIN ZINC\NEOMYCIN SULFATE\POLYMYXIN B SULFATE
     Indication: Scratch
     Dosage: JUST ENOUGH TO COVER THE SCRATCH, ONLY USE THIS ONCE, SINGLE
     Route: 061
  2. NEOSPORIN [Suspect]
     Active Substance: BACITRACIN ZINC\NEOMYCIN SULFATE\POLYMYXIN B SULFATE
     Dosage: (SMALL AMOUNT AFTER SHOWER JUST ENOUGH TO COVER THE SCRATCH)
     Route: 061
     Dates: start: 20250906, end: 2025

REACTIONS (1)
  - Drug hypersensitivity [Recovering/Resolving]

NARRATIVE: CASE EVENT DATE: 20230920
